FAERS Safety Report 4463209-7 (Version None)
Quarter: 2004Q3

REPORT INFORMATION
  Report Type: 
  Country: None (occurrence: None)
  Receive Date: 20040930
  Receipt Date: 20040915
  Transmission Date: 20050211
  Serious: Yes (Disabling)
  Sender: FDA-Public Use
  Company Number: US-MERCK-0409USA01353

PATIENT
  Sex: Male

DRUGS (3)
  1. [THERAPY UNSPECIFIED] [Concomitant]
     Indication: CARDIAC FAILURE CONGESTIVE
     Route: 065
  2. [THERAPY UNSPECIFIED] [Concomitant]
     Indication: LUNG DISORDER
     Route: 065
  3. ZOCOR [Suspect]
     Indication: CARDIAC FAILURE CONGESTIVE
     Route: 048
     Dates: start: 20030101, end: 20040101

REACTIONS (2)
  - MUSCULOSKELETAL STIFFNESS [None]
  - PAIN IN EXTREMITY [None]
